FAERS Safety Report 22199661 (Version 1)
Quarter: 2023Q2

REPORT INFORMATION
  Report Type: Report from Study
  Country: RU (occurrence: RU)
  Receive Date: 20230412
  Receipt Date: 20230412
  Transmission Date: 20230721
  Serious: Yes (Other)
  Sender: FDA-Public Use
  Company Number: RU-002147023-NVSC2023RU056635

PATIENT
  Age: 63 Year
  Sex: Male
  Weight: 90 kg

DRUGS (2)
  1. DABRAFENIB [Suspect]
     Active Substance: DABRAFENIB
     Indication: Metastatic malignant melanoma
     Dosage: 300 MG, QD
     Route: 048
     Dates: start: 20221108, end: 20230214
  2. TRAMETINIB [Suspect]
     Active Substance: TRAMETINIB
     Indication: Metastatic malignant melanoma
     Dosage: 2 MG, QD
     Route: 048
     Dates: start: 20221108, end: 20230214

REACTIONS (6)
  - Loss of consciousness [Recovered/Resolved]
  - Fall [Unknown]
  - Chest injury [Unknown]
  - General physical health deterioration [Unknown]
  - Ventricular extrasystoles [Unknown]
  - Fatigue [Unknown]

NARRATIVE: CASE EVENT DATE: 20230114
